FAERS Safety Report 8196682-1 (Version None)
Quarter: 2012Q1

REPORT INFORMATION
  Report Type: 
  Country: None (occurrence: None)
  Receive Date: 20120309
  Receipt Date: 20120305
  Transmission Date: 20120608
  Serious: Yes (Hospitalization)
  Sender: FDA-Public Use
  Company Number: US-BAYER-2012-022432

PATIENT
  Age: 29 Year
  Sex: Female
  Weight: 96 kg

DRUGS (2)
  1. DROSPIRENONE AND ETHINYL ESTRADIOL [Suspect]
     Indication: CONTRACEPTION
     Dosage: UNK
     Dates: start: 20090701, end: 20100601
  2. CRESTOR [Concomitant]
     Indication: BLOOD CHOLESTEROL INCREASED
     Dosage: UNK
     Dates: start: 20010101, end: 20090101

REACTIONS (4)
  - ABDOMINAL PAIN [None]
  - GALLBLADDER DISORDER [None]
  - PROCEDURAL PAIN [None]
  - DYSPEPSIA [None]
